FAERS Safety Report 9707415 (Version 2)
Quarter: 2013Q4

REPORT INFORMATION
  Report Type: Spontaneous
  Country: US (occurrence: US)
  Receive Date: 20131125
  Receipt Date: 20131125
  Transmission Date: 20140711
  Serious: Yes (Life-Threatening)
  Sender: FDA-Public Use
  Company Number: US-CELGENEUS-163-21880-13102022

PATIENT
  Sex: Female

DRUGS (2)
  1. REVLIMID [Suspect]
     Indication: CHRONIC LYMPHOCYTIC LEUKAEMIA
     Dosage: 10 MILLIGRAM
     Route: 048
     Dates: start: 20130928, end: 20130930
  2. METHADONE [Concomitant]
     Indication: PAIN
     Dosage: 10 MILLIGRAM
     Route: 065

REACTIONS (2)
  - Asthenia [Recovered/Resolved]
  - Abasia [Recovered/Resolved]
